FAERS Safety Report 4463860-4 (Version None)
Quarter: 2004Q3

REPORT INFORMATION
  Report Type: 
  Country: None (occurrence: None)
  Receive Date: 20040926
  Receipt Date: 20040916
  Transmission Date: 20050211
  Serious: Yes (Hospitalization, Other)
  Sender: FDA-Public Use
  Company Number: 2004234199DE

PATIENT
  Age: 54 Year
  Sex: Female

DRUGS (6)
  1. FARMORUBICIN(EPIRUBICIN HYDROCHLORIDE) SOLUTION, STERILE [Suspect]
     Indication: BREAST CANCER
     Dosage: 90 MG/M2, CYCLIC, IV
     Route: 042
     Dates: start: 20040727, end: 20040727
  2. FARMORUBICIN(EPIRUBICIN HYDROCHLORIDE) SOLUTION, STERILE [Suspect]
     Indication: BREAST CANCER
     Dosage: 90 MG/M2, CYCLIC, IV
     Route: 042
     Dates: start: 20040817, end: 20040817
  3. FARMORUBICIN(EPIRUBICIN HYDROCHLORIDE) SOLUTION, STERILE [Suspect]
     Indication: BREAST CANCER
     Dosage: 90 MG/M2, CYCLIC, IV
     Route: 042
     Dates: start: 20040907, end: 20040907
  4. CYCLOPHOSPHAMIDE [Concomitant]
  5. MESNA [Concomitant]
  6. CORTISONE (CORTISONE) [Concomitant]

REACTIONS (2)
  - PLEURISY [None]
  - PNEUMONIA [None]
